FAERS Safety Report 24206962 (Version 1)
Quarter: 2024Q3

REPORT INFORMATION
  Report Type: Spontaneous
  Country: TW (occurrence: TW)
  Receive Date: 20240813
  Receipt Date: 20240813
  Transmission Date: 20241016
  Serious: Yes (Death, Hospitalization, Other)
  Sender: AMGEN
  Company Number: TW-SERVIER-S24009826

PATIENT

DRUGS (2)
  1. IVABRADINE HYDROCHLORIDE [Suspect]
     Active Substance: IVABRADINE HYDROCHLORIDE
     Indication: Tachycardia
     Dosage: 5 MG BID TO 2.5 MG BID
     Route: 048
  2. IVABRADINE HYDROCHLORIDE [Suspect]
     Active Substance: IVABRADINE HYDROCHLORIDE
     Indication: Atrial fibrillation

REACTIONS (5)
  - Cardiac failure [Fatal]
  - Breast cancer [Fatal]
  - Pneumonia [Fatal]
  - Septic shock [Fatal]
  - Product use issue [Recovered/Resolved]
